FAERS Safety Report 5324932-5 (Version None)
Quarter: 2007Q2

REPORT INFORMATION
  Report Type: 
  Country: None (occurrence: None)
  Receive Date: 20070515
  Receipt Date: 20070507
  Transmission Date: 20071010
  Serious: Yes (Other)
  Sender: FDA-Public Use
  Company Number: CH-AMGEN-US137779

PATIENT
  Age: 52 Year
  Sex: Female

DRUGS (3)
  1. ENBREL [Suspect]
     Indication: POLYARTHRITIS
     Dosage: 50 MG PER WEEK
     Dates: end: 20070401
  2. ENBREL [Suspect]
     Dosage: ^2 X 25^
     Dates: start: 20010206, end: 20050101
  3. ENBREL [Suspect]
     Dosage: REDUCED DOSE
     Dates: start: 20050101

REACTIONS (1)
  - IRIDOCYCLITIS [None]
